FAERS Safety Report 8832990 (Version 2)
Quarter: 2012Q4

REPORT INFORMATION
  Report Type: 
  Country: CN (occurrence: CN)
  Receive Date: 20121010
  Receipt Date: 20121029
  Transmission Date: 20130627
  Serious: Yes (Other)
  Sender: FDA-Public Use
  Company Number: CN-PFIZER INC-2012248360

PATIENT
  Age: 3 None
  Sex: Female

DRUGS (1)
  1. SUTENT [Suspect]
     Indication: RENAL CANCER
     Dosage: 37.5 mg, once daily
     Route: 048

REACTIONS (2)
  - Ear haemorrhage [Recovered/Resolved]
  - Ear infection [Recovered/Resolved]
